FAERS Safety Report 24579237 (Version 3)
Quarter: 2024Q4

REPORT INFORMATION
  Report Type: Spontaneous
  Country: US (occurrence: US)
  Receive Date: 20241105
  Receipt Date: 20241212
  Transmission Date: 20250114
  Serious: No
  Sender: ROCHE
  Company Number: US-ROCHE-10000118278

PATIENT
  Age: 54 Year
  Sex: Female
  Weight: 63.96 kg

DRUGS (6)
  1. XOLAIR [Suspect]
     Active Substance: OMALIZUMAB
     Indication: Idiopathic urticaria
     Route: 058
     Dates: start: 202403
  2. XOLAIR [Suspect]
     Active Substance: OMALIZUMAB
     Indication: Urticaria
     Dosage: STRENGTH: 300MG/2ML
     Route: 058
     Dates: start: 202404
  3. XOLAIR [Suspect]
     Active Substance: OMALIZUMAB
     Indication: Chronic spontaneous urticaria
  4. XOLAIR PFS [Concomitant]
     Active Substance: OMALIZUMAB
  5. XOLAIR PFS [Concomitant]
     Active Substance: OMALIZUMAB
  6. ENTECAVIR [Concomitant]
     Active Substance: ENTECAVIR

REACTIONS (5)
  - Device malfunction [Unknown]
  - Device defective [Unknown]
  - Accidental exposure to product [Unknown]
  - Contusion [Not Recovered/Not Resolved]
  - Haemorrhage [Not Recovered/Not Resolved]

NARRATIVE: CASE EVENT DATE: 20240301
